FAERS Safety Report 24058263 (Version 3)
Quarter: 2024Q3

REPORT INFORMATION
  Report Type: Report from Study
  Country: US (occurrence: US)
  Receive Date: 20240708
  Receipt Date: 20240723
  Transmission Date: 20241017
  Serious: Yes (Hospitalization, Other)
  Sender: ABBVIE
  Company Number: US-ABBVIE-5826369

PATIENT
  Sex: Female

DRUGS (4)
  1. RINVOQ [Suspect]
     Active Substance: UPADACITINIB
     Indication: Crohn^s disease
     Route: 048
     Dates: start: 20240507, end: 20240621
  2. METHOTREXATE [Concomitant]
     Active Substance: METHOTREXATE
     Indication: Product used for unknown indication
  3. GENTAMICIN [Suspect]
     Active Substance: GENTAMICIN
     Indication: Product used for unknown indication
     Dosage: IV INFUSIONS
     Route: 042
  4. ROCEPHIN [Concomitant]
     Active Substance: CEFTRIAXONE SODIUM
     Indication: Product used for unknown indication

REACTIONS (16)
  - Acute kidney injury [Not Recovered/Not Resolved]
  - Pathogen resistance [Unknown]
  - Joint injury [Unknown]
  - Erythema [Unknown]
  - Dizziness [Unknown]
  - Nasopharyngitis [Unknown]
  - Blood pressure abnormal [Unknown]
  - Pyrexia [Unknown]
  - Lethargy [Unknown]
  - Wound complication [Unknown]
  - Cellulitis [Not Recovered/Not Resolved]
  - Red blood cell count decreased [Unknown]
  - Blood growth hormone decreased [Unknown]
  - Haematocrit abnormal [Unknown]
  - Platelet disorder [Unknown]
  - Renal function test abnormal [Not Recovered/Not Resolved]

NARRATIVE: CASE EVENT DATE: 20240101
